FAERS Safety Report 16153866 (Version 3)
Quarter: 2019Q2

REPORT INFORMATION
  Report Type: Spontaneous
  Country: US (occurrence: US)
  Receive Date: 20190403
  Receipt Date: 20190628
  Transmission Date: 20190711
  Serious: No
  Sender: FDA-Public Use
  Company Number: US-PFIZER INC-2019133480

PATIENT
  Age: 61 Year
  Sex: Female
  Weight: 83 kg

DRUGS (5)
  1. GABAPENTIN. [Concomitant]
     Active Substance: GABAPENTIN
     Indication: NEURALGIA
     Dosage: 600 MG, 2X/DAY
     Route: 048
  2. DOXEPIN [Concomitant]
     Active Substance: DOXEPIN
     Indication: PRURITUS
     Dosage: 10 MG, 1X/DAY
     Route: 048
  3. XELJANZ [Suspect]
     Active Substance: TOFACITINIB CITRATE
     Indication: ARTHRITIS
     Dosage: 5 MG, 2X/DAY
     Route: 048
  4. XELJANZ [Suspect]
     Active Substance: TOFACITINIB CITRATE
     Indication: HYPEREOSINOPHILIC SYNDROME
     Dosage: 11 MG, 1X/DAY
     Dates: start: 201902
  5. CLONAZEPAM. [Concomitant]
     Active Substance: CLONAZEPAM
     Indication: PSYCHIATRIC SYMPTOM
     Dosage: 0.5 MG, 3X/DAY
     Route: 048

REACTIONS (4)
  - Weight increased [Recovering/Resolving]
  - Upper-airway cough syndrome [Recovering/Resolving]
  - Memory impairment [Recovering/Resolving]
  - Rhinorrhoea [Recovering/Resolving]
